FAERS Safety Report 5754277-0 (Version None)
Quarter: 2008Q2

REPORT INFORMATION
  Report Type: 
  Country: None (occurrence: None)
  Receive Date: 20080530
  Receipt Date: 20080523
  Transmission Date: 20081010
  Serious: Yes (Other)
  Sender: FDA-Public Use
  Company Number: GB-ROCHE-566616

PATIENT
  Sex: Female
  Weight: 80.3 kg

DRUGS (5)
  1. ORLISTAT [Suspect]
     Indication: OBESITY
     Route: 048
     Dates: start: 20071128
  2. IRON [Concomitant]
     Indication: ANAEMIA
     Route: 048
  3. VITAMIN B-12 [Concomitant]
     Indication: ANAEMIA
     Route: 065
  4. VITAMIN B-12 [Concomitant]
     Route: 048
  5. FLUOXETINE HCL [Concomitant]
     Indication: DEPRESSION
     Route: 048

REACTIONS (3)
  - BLOOD POTASSIUM INCREASED [None]
  - ILL-DEFINED DISORDER [None]
  - PARAESTHESIA [None]
